FAERS Safety Report 12239700 (Version 1)
Quarter: 2016Q2

REPORT INFORMATION
  Report Type: Spontaneous
  Country: US (occurrence: US)
  Receive Date: 20160405
  Receipt Date: 20160405
  Transmission Date: 20160815
  Serious: No
  Sender: FDA-Public Use
  Company Number: US-BRISTOL-MYERS SQUIBB COMPANY-BMS-2016-024314

PATIENT
  Age: 52 Year
  Sex: Female

DRUGS (2)
  1. KENALOG-10 [Suspect]
     Active Substance: TRIAMCINOLONE ACETONIDE
     Indication: MYCOSIS FUNGOIDES
     Dosage: 0.1 ML, UNK
     Route: 026
  2. KENALOG-10 [Suspect]
     Active Substance: TRIAMCINOLONE ACETONIDE
     Dosage: 0.4 ML, UNK
     Route: 026

REACTIONS (1)
  - Skin hypopigmentation [Recovered/Resolved]
